FAERS Safety Report 18600444 (Version 1)
Quarter: 2020Q4

REPORT INFORMATION
  Report Type: Spontaneous
  Country: PL (occurrence: PL)
  Receive Date: 20201210
  Receipt Date: 20201210
  Transmission Date: 20210114
  Serious: Yes (Other)
  Sender: FDA-Public Use
  Company Number: PL-PFIZER INC-2020480365

PATIENT
  Sex: Male
  Weight: 123 kg

DRUGS (10)
  1. VINCRISTINE SULFATE. [Suspect]
     Active Substance: VINCRISTINE SULFATE
     Indication: B-CELL LYMPHOMA
     Dosage: UNK, CYCLIC (6 CYCLES IN TOTAL)
     Dates: start: 20190315, end: 20190628
  2. BENDAMUSTINE [Suspect]
     Active Substance: BENDAMUSTINE
     Indication: B-CELL LYMPHOMA
     Dosage: UNK
     Dates: start: 20200122, end: 20200609
  3. RITUXIMAB. [Suspect]
     Active Substance: RITUXIMAB
     Indication: B-CELL LYMPHOMA
     Dosage: UNK, CYCLIC (6 CYCLES IN TOTAL)
     Route: 042
     Dates: start: 20190315, end: 20190628
  4. TERTENSIF [Concomitant]
     Active Substance: INDAPAMIDE
     Indication: HYPERTENSION
     Dosage: 1.5 MG
  5. CYCLOPHOSPHAMIDE. [Suspect]
     Active Substance: CYCLOPHOSPHAMIDE
     Indication: B-CELL LYMPHOMA
     Dosage: UNK, CYCLIC (6 CYCLES IN TOTAL)
     Dates: start: 20190315, end: 20190628
  6. GAZYVARO [Suspect]
     Active Substance: OBINUTUZUMAB
     Indication: B-CELL LYMPHOMA
     Dosage: UNK, CYCLIC (6 CYCLES)
     Dates: start: 20200122, end: 20200609
  7. ISOPTIN SR [VERAPAMIL HYDROCHLORIDE] [Concomitant]
     Indication: HYPERTENSION
     Dosage: 120 MG
  8. DOXORUBICIN HCL [Suspect]
     Active Substance: DOXORUBICIN HYDROCHLORIDE
     Indication: B-CELL LYMPHOMA
     Dosage: UNK, CYCLIC(6 CYCLES IN TOTAL)
     Dates: start: 20190315, end: 20190628
  9. PREDNISOLONE. [Suspect]
     Active Substance: PREDNISOLONE
     Indication: B-CELL LYMPHOMA
     Dosage: UNK, CYCLIC (6 CYCLES IN TOTAL)
     Dates: start: 20190315, end: 20190628
  10. RITUXIMAB. [Suspect]
     Active Substance: RITUXIMAB
     Indication: B-CELL LYMPHOMA
     Dosage: 1400 MG, CYCLIC (3 CYCLE)
     Route: 058
     Dates: start: 20190812, end: 20191205

REACTIONS (1)
  - Groin pain [Recovered/Resolved]

NARRATIVE: CASE EVENT DATE: 20191212
